FAERS Safety Report 8451814-2 (Version None)
Quarter: 2012Q2

REPORT INFORMATION
  Report Type: 
  Country: None (occurrence: None)
  Receive Date: 20120620
  Receipt Date: 20120319
  Transmission Date: 20120825
  Serious: No
  Sender: FDA-Public Use
  Company Number: US-VERTEX PHARMACEUTICALS INC.-AE-2012-003942

PATIENT
  Sex: Male
  Weight: 93.07 kg

DRUGS (7)
  1. RIBASPHERE [Concomitant]
     Indication: HEPATITIS C
     Route: 048
     Dates: start: 20120224
  2. INCIVEK [Suspect]
     Indication: HEPATITIS C
     Route: 048
     Dates: start: 20120224
  3. DILAUDID [Concomitant]
     Route: 048
  4. CLONIPINE [Concomitant]
  5. PEGASYS [Concomitant]
     Indication: HEPATITIS C
     Route: 058
     Dates: start: 20120224
  6. METHADONE HCL [Concomitant]
  7. LEVOTHROID [Concomitant]

REACTIONS (3)
  - PYREXIA [None]
  - INJECTION SITE ERYTHEMA [None]
  - INFLUENZA [None]
